FAERS Safety Report 15979361 (Version 1)
Quarter: 2019Q1

REPORT INFORMATION
  Report Type: Spontaneous
  Country: US (occurrence: US)
  Receive Date: 20190216
  Receipt Date: 20190216
  Transmission Date: 20190418
  Serious: Yes (Disabling)
  Sender: FDA-Public Use
  Company Number: None

PATIENT
  Age: 58 Year
  Sex: Female
  Weight: 63.9 kg

DRUGS (19)
  1. OMEGA 3 [Concomitant]
     Active Substance: OMEGA-3 FATTY ACIDS
  2. PROVIOTIC [Concomitant]
  3. CELECOXIB. [Concomitant]
     Active Substance: CELECOXIB
  4. DULOXETINE. [Concomitant]
     Active Substance: DULOXETINE
  5. RECLAST [Concomitant]
     Active Substance: ZOLEDRONIC ACID
  6. PROLIA [Suspect]
     Active Substance: DENOSUMAB
     Indication: OSTEOPOROSIS
     Dosage: ?          QUANTITY:1 INJECTION(S);OTHER ROUTE:INJECTION EVERY SIX MONTHS?
     Dates: start: 20131220, end: 20170824
  7. CALCIUM [Concomitant]
     Active Substance: CALCIUM
  8. MAGNESIUM [Concomitant]
     Active Substance: MAGNESIUM
  9. MULTIVITAMIN [Concomitant]
     Active Substance: VITAMINS
  10. CHINESE HERBS [Concomitant]
     Active Substance: HERBALS
  11. ACETAMINOPHEN. [Concomitant]
     Active Substance: ACETAMINOPHEN
  12. TURMERIC [Concomitant]
     Active Substance: HERBALS\TURMERIC
  13. GABAPENTINE [Concomitant]
     Active Substance: GABAPENTIN
  14. MODAFINIL. [Concomitant]
     Active Substance: MODAFINIL
  15. TLSO BODY BRACE [Concomitant]
  16. ALPRAZOLAM. [Concomitant]
     Active Substance: ALPRAZOLAM
  17. BUSPIRONE [Concomitant]
     Active Substance: BUSPIRONE HYDROCHLORIDE
  18. NORTRIPTYLINE [Concomitant]
     Active Substance: NORTRIPTYLINE
  19. FORTEO [Concomitant]
     Active Substance: TERIPARATIDE

REACTIONS (6)
  - Spinal compression fracture [None]
  - Immunosuppression [None]
  - Neuralgia [None]
  - Breast cancer [None]
  - Back pain [None]
  - Nerve compression [None]

NARRATIVE: CASE EVENT DATE: 20180829
